FAERS Safety Report 5476796-7 (Version None)
Quarter: 2007Q4

REPORT INFORMATION
  Report Type: 
  Country: None (occurrence: None)
  Receive Date: 20071004
  Receipt Date: 20070924
  Transmission Date: 20080405
  Serious: Yes (Death, Hospitalization)
  Sender: FDA-Public Use
  Company Number: CZ-JNJFOC-20070904893

PATIENT
  Sex: Male

DRUGS (5)
  1. INFLIXIMAB [Suspect]
     Indication: ANKYLOSING SPONDYLITIS
     Route: 042
  2. SALAZOPYRIN [Concomitant]
  3. PREDNISON [Concomitant]
  4. FOSAMAX [Concomitant]
  5. IBUPROFEN [Concomitant]

REACTIONS (2)
  - DISSEMINATED TUBERCULOSIS [None]
  - PNEUMONIA [None]
